FAERS Safety Report 13559870 (Version 2)
Quarter: 2017Q2

REPORT INFORMATION
  Report Type: Spontaneous
  Country: IT (occurrence: IT)
  Receive Date: 20170518
  Receipt Date: 20170524
  Transmission Date: 20170830
  Serious: Yes (Hospitalization)
  Sender: FDA-Public Use
  Company Number: IT-PFIZER INC-2017216211

PATIENT
  Age: 61 Year
  Sex: Male

DRUGS (11)
  1. CATAPRESAN /00171101/ [Suspect]
     Active Substance: CLONIDINE
     Indication: HYPERTENSION
     Dosage: UNK
     Route: 062
     Dates: start: 20160101, end: 20160711
  2. CATAPRESAN /00171101/ [Suspect]
     Active Substance: CLONIDINE
     Dosage: DOSE REDUCED
     Route: 062
  3. TORVAST [Concomitant]
     Active Substance: ATORVASTATIN
     Dosage: UNK
     Route: 048
  4. XELEVIA [Concomitant]
     Active Substance: SITAGLIPTIN PHOSPHATE
     Dosage: UNK
  5. LECANIDIPINE [Concomitant]
     Dosage: 40 MG, UNK
     Route: 048
  6. DOXAZOSIN MESILATE [Suspect]
     Active Substance: DOXAZOSIN MESYLATE
     Indication: HYPERTENSION
     Dosage: 2 MG, 2X/DAY
     Route: 048
     Dates: start: 20160301, end: 20160711
  7. NITRODERM [Concomitant]
     Active Substance: NITROGLYCERIN
     Dosage: 15 MG, UNK
     Route: 062
  8. CARDIRENE [Concomitant]
     Active Substance: ASPIRIN DL-LYSINE
     Dosage: UNK
     Route: 048
  9. LANTUS [Concomitant]
     Active Substance: INSULIN GLARGINE
     Dosage: 5 IU, UNK
     Route: 058
  10. DIDROGYL [Concomitant]
     Active Substance: CALCIFEDIOL
     Dosage: UNK
     Route: 048
  11. CALCIODIE [Concomitant]
     Dosage: 1000 MG, UNK
     Route: 048

REACTIONS (5)
  - Chest pain [Recovering/Resolving]
  - Syncope [Recovering/Resolving]
  - Loss of consciousness [Recovering/Resolving]
  - Hypertensive crisis [Recovering/Resolving]
  - Blood pressure inadequately controlled [Recovering/Resolving]

NARRATIVE: CASE EVENT DATE: 20160711
